FAERS Safety Report 8943769 (Version 2)
Quarter: 2012Q4

REPORT INFORMATION
  Report Type: 
  Country: JP (occurrence: JP)
  Receive Date: 20121203
  Receipt Date: 20121212
  Transmission Date: 20130627
  Serious: Yes (Hospitalization)
  Sender: FDA-Public Use
  Company Number: JP-GLAXOSMITHKLINE-B0841806A

PATIENT
  Age: 61 Year
  Sex: Male

DRUGS (12)
  1. LAMICTAL [Suspect]
     Indication: BEHAVIOURAL AND PSYCHIATRIC SYMPTOMS OF DEMENTIA
     Dosage: 25MG Per day
     Route: 048
     Dates: start: 20120830, end: 20120905
  2. LAMICTAL [Suspect]
     Indication: BEHAVIOURAL AND PSYCHIATRIC SYMPTOMS OF DEMENTIA
     Route: 048
     Dates: start: 20120906, end: 20120912
  3. LAMICTAL [Suspect]
     Indication: BEHAVIOURAL AND PSYCHIATRIC SYMPTOMS OF DEMENTIA
     Route: 048
     Dates: start: 20120913, end: 20120919
  4. LAMICTAL [Suspect]
     Indication: BEHAVIOURAL AND PSYCHIATRIC SYMPTOMS OF DEMENTIA
     Route: 048
     Dates: start: 20120920, end: 20121004
  5. LAMICTAL [Suspect]
     Indication: BEHAVIOURAL AND PSYCHIATRIC SYMPTOMS OF DEMENTIA
     Dosage: 75MG Per day
     Route: 048
     Dates: start: 20121005, end: 20121005
  6. LAMICTAL [Suspect]
     Indication: BEHAVIOURAL AND PSYCHIATRIC SYMPTOMS OF DEMENTIA
     Route: 048
     Dates: start: 20121006, end: 20121008
  7. LAMICTAL [Suspect]
     Indication: BEHAVIOURAL AND PSYCHIATRIC SYMPTOMS OF DEMENTIA
     Dosage: 25MG Twice per day
     Route: 048
     Dates: start: 20121009, end: 20121009
  8. LAMICTAL [Suspect]
     Indication: BEHAVIOURAL AND PSYCHIATRIC SYMPTOMS OF DEMENTIA
     Dosage: 25MG Per day
     Route: 048
     Dates: start: 20121010, end: 20121011
  9. ZOSYN [Suspect]
     Indication: PNEUMONIA ASPIRATION
     Dosage: 4.5G Three times per day
     Route: 042
     Dates: start: 20120919, end: 20120924
  10. LEVOTOMIN [Concomitant]
     Route: 048
  11. GRAMALIL [Concomitant]
     Route: 048
  12. REMINYL [Concomitant]
     Route: 048

REACTIONS (9)
  - Pneumonia aspiration [Recovering/Resolving]
  - Rash [Recovered/Resolved]
  - Drug eruption [Recovered/Resolved]
  - Platelet count decreased [Recovered/Resolved]
  - Urticaria [Unknown]
  - Pruritus [Unknown]
  - Petechiae [Recovering/Resolving]
  - C-reactive protein increased [Unknown]
  - White blood cell count increased [Unknown]
